FAERS Safety Report 19716537 (Version 1)
Quarter: 2021Q3

REPORT INFORMATION
  Report Type: Spontaneous
  Country: FR (occurrence: FR)
  Receive Date: 20210819
  Receipt Date: 20210819
  Transmission Date: 20211014
  Serious: Yes (Other)
  Sender: FDA-Public Use
  Company Number: FR-SUN PHARMACEUTICAL INDUSTRIES LTD-2021RR-308382

PATIENT
  Age: 32 Year
  Sex: Female

DRUGS (3)
  1. LEXOMIL [Suspect]
     Active Substance: BROMAZEPAM
     Indication: PRODUCT USED FOR UNKNOWN INDICATION
     Dosage: 1.5 MILLIGRAM, DAILY
     Route: 048
  2. EUPHON (CODEINE\HERBALS) [Suspect]
     Active Substance: CODEINE\HERBALS
     Indication: PRODUCT USED FOR UNKNOWN INDICATION
     Dosage: DAILY ()
     Route: 048
  3. ZOLPIDEM [Suspect]
     Active Substance: ZOLPIDEM TARTRATE
     Indication: PRODUCT USED FOR UNKNOWN INDICATION
     Dosage: 1 TO 2 CPS/DAY ()
     Route: 048

REACTIONS (1)
  - Drug dependence [Not Recovered/Not Resolved]
